FAERS Safety Report 5517572-6 (Version None)
Quarter: 2007Q4

REPORT INFORMATION
  Report Type: 
  Country: None (occurrence: None)
  Receive Date: 20071114
  Receipt Date: 20071102
  Transmission Date: 20080405
  Serious: Yes (Life-Threatening, Hospitalization, Other)
  Sender: FDA-Public Use
  Company Number: US-PFIZER INC-2007075740

PATIENT
  Sex: Female
  Weight: 68 kg

DRUGS (6)
  1. DILANTIN [Suspect]
     Indication: GRAND MAL CONVULSION
     Dosage: TEXT:EVERYDAY
     Dates: start: 19990101, end: 20010101
  2. DILANTIN [Suspect]
     Dosage: TEXT:EVERYDAY
  3. DILANTIN [Suspect]
  4. PREVACID [Concomitant]
  5. SYNTHROID [Concomitant]
  6. ALL OTHER THERAPEUTIC PRODUCTS [Concomitant]

REACTIONS (11)
  - ANTICONVULSANT DRUG LEVEL DECREASED [None]
  - ANTICONVULSANT DRUG LEVEL INCREASED [None]
  - AUTOTRANSFUSION [None]
  - CONVULSION [None]
  - DIZZINESS [None]
  - MALAISE [None]
  - SPINAL OPERATION [None]
  - TEETH BRITTLE [None]
  - TOOTH EROSION [None]
  - TOOTH LOSS [None]
  - WRIST FRACTURE [None]
